FAERS Safety Report 8021278-1 (Version None)
Quarter: 2012Q1

REPORT INFORMATION
  Report Type: 
  Country: None (occurrence: None)
  Receive Date: 20120104
  Receipt Date: 20111223
  Transmission Date: 20120608
  Serious: Yes (Hospitalization)
  Sender: FDA-Public Use
  Company Number: US-BAYER-2011-082106

PATIENT
  Age: 25 Year
  Sex: Female
  Weight: 75 kg

DRUGS (4)
  1. ALLEGRA-D 12 HOUR [Concomitant]
     Dosage: UNK
     Dates: start: 20080805
  2. YAZ [Suspect]
     Indication: CONTRACEPTION
     Dosage: UNK
     Dates: start: 20060101, end: 20080101
  3. YASMIN [Suspect]
     Indication: CONTRACEPTION
     Dosage: UNK
     Dates: start: 20040101, end: 20060101
  4. NASACORT AQ [Concomitant]
     Dosage: 55 MCG
     Dates: start: 20080805

REACTIONS (7)
  - FOCAL NODULAR HYPERPLASIA [None]
  - CHOLECYSTITIS CHRONIC [None]
  - VOMITING [None]
  - GALLBLADDER NON-FUNCTIONING [None]
  - INJURY [None]
  - CHEST PAIN [None]
  - PAIN [None]
